FAERS Safety Report 12718664 (Version 2)
Quarter: 2016Q3

REPORT INFORMATION
  Report Type: Report from Study
  Country: CA (occurrence: CA)
  Receive Date: 20160906
  Receipt Date: 20160926
  Transmission Date: 20161109
  Serious: Yes (Other)
  Sender: FDA-Public Use
  Company Number: CA-ABBVIE-16K-028-1717404-00

PATIENT
  Age: 26 Year
  Sex: Female
  Weight: 68.9 kg

DRUGS (1)
  1. HUMIRA [Suspect]
     Active Substance: ADALIMUMAB
     Indication: CROHN^S DISEASE
     Route: 058
     Dates: start: 20151123

REACTIONS (5)
  - Tooth abscess [Not Recovered/Not Resolved]
  - Loose tooth [Unknown]
  - Tooth infection [Recovered/Resolved]
  - Immunodeficiency [Unknown]
  - Mass [Recovered/Resolved]

NARRATIVE: CASE EVENT DATE: 201608
